FAERS Safety Report 4376849-0 (Version None)
Quarter: 2004Q2

REPORT INFORMATION
  Report Type: 
  Country: None (occurrence: None)
  Receive Date: 20040609
  Receipt Date: 20040226
  Transmission Date: 20050107
  Serious: Yes (Other)
  Sender: FDA-Public Use
  Company Number: PHEH2003US11699

PATIENT
  Age: 33 Year
  Sex: Female
  Weight: 68 kg

DRUGS (4)
  1. GLEEVEC [Suspect]
     Indication: CHRONIC MYELOID LEUKAEMIA
     Dosage: 100 + 400 MG, QD, ORAL
     Route: 048
     Dates: start: 20030910, end: 20031203
  2. GLEEVEC [Suspect]
     Indication: CHRONIC MYELOID LEUKAEMIA
     Dosage: 100 + 400 MG, QD, ORAL
     Route: 048
     Dates: start: 20040212, end: 20040225
  3. NYQUIL(EPHEDRINE SULFATE) [Suspect]
     Indication: NASOPHARYNGITIS
     Dosage: ORAL
     Route: 048
     Dates: start: 20031101, end: 20031101
  4. DAYQUIL ^PROCTER 7 GAMBLE^ (DEXTROMETHORPHANHYDROBROMIDE, PARACETAMOL, [Suspect]
     Indication: NASOPHARYNGITIS
     Dosage: ORAL
     Route: 048
     Dates: start: 20031101, end: 20031101

REACTIONS (4)
  - ALANINE AMINOTRANSFERASE INCREASED [None]
  - ASPARTATE AMINOTRANSFERASE INCREASED [None]
  - HEPATIC ENZYME INCREASED [None]
  - NASOPHARYNGITIS [None]
